FAERS Safety Report 5411406-6 (Version None)
Quarter: 2007Q3

REPORT INFORMATION
  Report Type: 
  Country: None (occurrence: None)
  Receive Date: 20070810
  Receipt Date: 20070806
  Transmission Date: 20080115
  Serious: Yes (Life-Threatening)
  Sender: FDA-Public Use
  Company Number: CN-ASTRAZENECA-2007AP04717

PATIENT
  Age: 86 Year
  Sex: Male
  Weight: 65 kg

DRUGS (1)
  1. PLENDIL [Suspect]
     Dosage: PT TOOK 7-8 TABLETS
     Route: 048
     Dates: start: 20070728, end: 20070728

REACTIONS (7)
  - ACCIDENTAL OVERDOSE [None]
  - COMA [None]
  - CONFUSIONAL STATE [None]
  - DYSPNOEA [None]
  - HYPOTENSION [None]
  - LUNG INFECTION [None]
  - RENAL TUBULAR DISORDER [None]
